FAERS Safety Report 5961887-4 (Version None)
Quarter: 2008Q4

REPORT INFORMATION
  Report Type: 
  Country: None (occurrence: None)
  Receive Date: 20081121
  Receipt Date: 20080918
  Transmission Date: 20090506
  Serious: No
  Sender: FDA-Public Use
  Company Number: US-BRISTOL-MYERS SQUIBB COMPANY-14339741

PATIENT
  Sex: Female

DRUGS (2)
  1. AVALIDE [Suspect]
  2. AMLODIPINE [Suspect]

REACTIONS (1)
  - OEDEMA PERIPHERAL [None]
